FAERS Safety Report 25160590 (Version 2)
Quarter: 2025Q2

REPORT INFORMATION
  Report Type: Report from Study
  Country: US (occurrence: US)
  Receive Date: 20250404
  Receipt Date: 20250410
  Transmission Date: 20250716
  Serious: Yes (Hospitalization, Other)
  Sender: EMD SERONO INC
  Company Number: US-Merck Healthcare KGaA-2025016063

PATIENT
  Age: 70 Year
  Sex: Male

DRUGS (3)
  1. REBIF [Suspect]
     Active Substance: INTERFERON BETA-1A
     Indication: Multiple sclerosis
     Dates: start: 20040110
  2. REBIF [Suspect]
     Active Substance: INTERFERON BETA-1A
     Dates: start: 202312, end: 20250315
  3. MIDAZOLAM [Suspect]
     Active Substance: MIDAZOLAM
     Indication: Product used for unknown indication

REACTIONS (10)
  - Renal failure [Unknown]
  - Arthropathy [Unknown]
  - Neuropathy peripheral [Unknown]
  - Dysstasia [Recovering/Resolving]
  - Fungal infection [Unknown]
  - Kidney infection [Unknown]
  - Haemoglobin decreased [Unknown]
  - Dyspnoea [Unknown]
  - Arthritis [Unknown]
  - Localised infection [Unknown]

NARRATIVE: CASE EVENT DATE: 20240606
